FAERS Safety Report 9625625 (Version 2)
Quarter: 2013Q4

REPORT INFORMATION
  Report Type: Spontaneous
  Country: DE (occurrence: DE)
  Receive Date: 20131016
  Receipt Date: 20131030
  Transmission Date: 20140711
  Serious: Yes (Life-Threatening, Congenital Anomaly)
  Sender: FDA-Public Use
  Company Number: DE-RANBAXY-2013RR-74137

PATIENT
  Sex: Female

DRUGS (3)
  1. METFORMIN [Suspect]
     Indication: POLYCYSTIC OVARIES
     Dosage: 500 MG, BID, DURING 0-11.2 GESTATIONAL WEEKS
     Route: 064
  2. TRAMAL [Concomitant]
     Indication: TOOTHACHE
     Dosage: UNK, SINGLE, IN THE FIRST TRIMESTER
     Route: 064
  3. FOLSAURE [Concomitant]
     Indication: PROPHYLAXIS OF NEURAL TUBE DEFECT
     Dosage: UNK, DURING GESTATIONAL WEEKS 5-11.2
     Route: 064

REACTIONS (3)
  - Meningomyelocele [Not Recovered/Not Resolved]
  - Ectopia cordis [Not Recovered/Not Resolved]
  - Gastroschisis [Not Recovered/Not Resolved]
